FAERS Safety Report 7530958-3 (Version None)
Quarter: 2011Q2

REPORT INFORMATION
  Report Type: 
  Country: None (occurrence: None)
  Receive Date: 20110531
  Receipt Date: 20110516
  Transmission Date: 20111010
  Serious: Yes (Life-Threatening, Hospitalization)
  Sender: FDA-Public Use
  Company Number: 2011MA005943

PATIENT
  Age: 38 Year
  Sex: Female

DRUGS (2)
  1. AIMSULPRIDE [Concomitant]
  2. HALOPERIDOL LACTATE [Suspect]
     Dosage: 50 MG;1X;IM
     Route: 030

REACTIONS (6)
  - CARDIAC ARREST [None]
  - COGNITIVE DISORDER [None]
  - ELECTROCARDIOGRAM QT PROLONGED [None]
  - VENTRICULAR TACHYCARDIA [None]
  - VENTRICULAR FIBRILLATION [None]
  - NERVOUS SYSTEM DISORDER [None]
